FAERS Safety Report 5211166-8 (Version None)
Quarter: 2006Q4

REPORT INFORMATION
  Report Type: 
  Country: None (occurrence: None)
  Receive Date: 20061130
  Receipt Date: 20051019
  Transmission Date: 20070319
  Serious: Yes (Other)
  Sender: FDA-Public Use
  Company Number: WAES 0510USA07891

PATIENT
  Age: 57 Year
  Sex: Female

DRUGS (3)
  1. FOSAMAX [Suspect]
     Indication: OSTEOPOROSIS
     Dosage: SEE IMAGE
     Route: 048
     Dates: start: 20000101, end: 20010101
  2. FOSAMAX [Suspect]
     Indication: OSTEOPOROSIS
     Dosage: SEE IMAGE
     Route: 048
     Dates: start: 20010101, end: 20051001
  3. COMBIPATCH [Concomitant]

REACTIONS (1)
  - OSTEONECROSIS [None]
